FAERS Safety Report 8842910 (Version 1)
Quarter: 2012Q4

REPORT INFORMATION
  Report Type: 
  Country: US (occurrence: US)
  Receive Date: 20121016
  Receipt Date: 20121016
  Transmission Date: 20130627
  Serious: Yes (Hospitalization, Other)
  Sender: FDA-Public Use
  Company Number: US-COVIDIEN/TYCO HEALTHCARE/MALLINCKRODT-T201203612

PATIENT
  Age: 27 Year
  Sex: Female
  Weight: 82 kg

DRUGS (5)
  1. HYDROCODONE/ACETAMINOPHEN [Suspect]
     Indication: PRODUCT USED FOR UNKNOWN INDICATION
     Dosage: 5/500; 30-40 tablets per day
  2. HYDROCODONE/ACETAMINOPHEN [Suspect]
     Dosage: Dose 3 gm/day APAP
  3. CARISOPRODOL [Concomitant]
     Indication: PRODUCT USED FOR UNKNOWN INDICATION
     Dosage: 350 mg; 15-20 tablets/day
  4. METOCLOPRAMIDE [Concomitant]
  5. MILK OF MAGNESIA [Concomitant]

REACTIONS (8)
  - Metabolic acidosis [Unknown]
  - Vomiting [Unknown]
  - Abdominal pain [Unknown]
  - Weight decreased [Unknown]
  - Helicobacter infection [Unknown]
  - Large intestine polyp [Unknown]
  - Nausea [Unknown]
  - Overdose [Unknown]
